FAERS Safety Report 10465746 (Version 1)
Quarter: 2014Q3

REPORT INFORMATION
  Report Type: Spontaneous
  Country: US (occurrence: US)
  Receive Date: 20140921
  Receipt Date: 20140921
  Transmission Date: 20150326
  Serious: Yes (Other)
  Sender: FDA-Public Use
  Company Number: US-TEVA-509661USA

PATIENT
  Sex: Male

DRUGS (2)
  1. OLANZAPINE. [Suspect]
     Active Substance: OLANZAPINE
     Dates: start: 2014
  2. OLANZAPINE. [Suspect]
     Active Substance: OLANZAPINE

REACTIONS (12)
  - Epilepsy [Unknown]
  - Anxiety [Unknown]
  - Nervousness [Unknown]
  - Gastric disorder [Unknown]
  - Dystonia [Unknown]
  - Convulsion [Unknown]
  - Drug prescribing error [Unknown]
  - Anger [Unknown]
  - Irritability [Unknown]
  - Middle insomnia [Unknown]
  - Product quality issue [Unknown]
  - Product contamination physical [Unknown]

NARRATIVE: CASE EVENT DATE: 2014
